FAERS Safety Report 10252410 (Version 1)
Quarter: 2014Q2

REPORT INFORMATION
  Report Type: Spontaneous
  Country: FR (occurrence: FR)
  Receive Date: 20140623
  Receipt Date: 20140623
  Transmission Date: 20141212
  Serious: Yes (Hospitalization)
  Sender: FDA-Public Use
  Company Number: FR-EISAI INC-E2080-00739-SPO-FR

PATIENT
  Age: 40 Year
  Sex: Female

DRUGS (10)
  1. INOVELON [Suspect]
     Indication: EPILEPSY
     Dosage: 1800 MG DAILY
     Route: 048
     Dates: end: 20140514
  2. INOVELON [Suspect]
     Dosage: 2400 MG DAILY
     Route: 048
     Dates: start: 20140515, end: 20140609
  3. INOVELON [Suspect]
     Dosage: 1800 MG DAILY
     Route: 048
     Dates: start: 20140610, end: 201406
  4. INOVELON [Suspect]
     Dosage: 1200 MG DAILY
     Route: 048
     Dates: start: 201406, end: 20140617
  5. TEGRETOL [Concomitant]
     Indication: PRODUCT USED FOR UNKNOWN INDICATION
     Dosage: UNKNOWN
     Route: 048
     Dates: end: 20140608
  6. TEMESTA [Concomitant]
     Indication: PRODUCT USED FOR UNKNOWN INDICATION
     Dosage: UNKNOWN
     Route: 048
     Dates: end: 20140608
  7. LAROXYL [Concomitant]
     Indication: PRODUCT USED FOR UNKNOWN INDICATION
     Dosage: UNKNOWN
     Route: 048
     Dates: end: 20140608
  8. TERCIAN [Concomitant]
     Indication: PRODUCT USED FOR UNKNOWN INDICATION
     Dosage: UNKNOWN
     Route: 048
     Dates: end: 20140608
  9. RIVOTRIL [Concomitant]
     Indication: PRODUCT USED FOR UNKNOWN INDICATION
     Dosage: UNKNOWN
     Route: 048
     Dates: end: 20140608
  10. CIRCADIN [Concomitant]
     Indication: PRODUCT USED FOR UNKNOWN INDICATION
     Dosage: UNKNOWN
     Route: 048
     Dates: end: 20140608

REACTIONS (6)
  - Hepatocellular injury [Recovering/Resolving]
  - Convulsion [Recovering/Resolving]
  - Diarrhoea [Recovering/Resolving]
  - Diplopia [Recovering/Resolving]
  - Headache [Recovering/Resolving]
  - Vomiting [Recovering/Resolving]
